FAERS Safety Report 5726626-0 (Version None)
Quarter: 2008Q2

REPORT INFORMATION
  Report Type: 
  Country: None (occurrence: None)
  Receive Date: 20080502
  Receipt Date: 20080421
  Transmission Date: 20081010
  Serious: Yes (Hospitalization)
  Sender: FDA-Public Use
  Company Number: BR-JNJFOC-20080405425

PATIENT
  Sex: Male
  Weight: 78 kg

DRUGS (33)
  1. TMC125 [Suspect]
     Route: 048
  2. TMC125 [Suspect]
     Indication: HIV INFECTION
     Route: 048
  3. TMC114 [Suspect]
     Route: 048
  4. TMC114 [Suspect]
     Indication: HIV INFECTION
     Route: 048
  5. RITONAVIR [Suspect]
     Indication: HIV INFECTION
     Route: 048
  6. FORMOTEROL [Concomitant]
     Route: 045
  7. N-ACETYLCYSTEINE [Concomitant]
     Route: 048
  8. COMBIVIR [Concomitant]
     Indication: HIV INFECTION
     Route: 048
  9. VIREAD [Concomitant]
     Indication: HIV INFECTION
     Route: 048
  10. ACYCLOVIR [Concomitant]
     Indication: HERPES SIMPLEX
     Route: 061
  11. VALACYCLOVIR [Concomitant]
     Indication: HERPES SIMPLEX
     Route: 048
  12. CEFEPIME [Concomitant]
     Route: 042
  13. NAFAZOLINE [Concomitant]
     Route: 045
  14. METHYLPREDNISOLONE [Concomitant]
     Route: 042
  15. SPIRONOLACTONE [Concomitant]
     Indication: CARDIAC FAILURE
     Route: 048
  16. FUROSEMIDE [Concomitant]
     Indication: CARDIAC FAILURE
     Route: 048
  17. CLONAZEPAM [Concomitant]
     Indication: ANXIETY
     Route: 048
  18. WARFARIN SODIUM [Concomitant]
     Indication: THROMBOSIS
     Route: 048
  19. AMLODIPINE BESYLATE [Concomitant]
     Route: 048
  20. FLUCONAZOLE [Concomitant]
     Indication: ORAL CANDIDIASIS
     Route: 048
  21. BROMAZEPAM [Concomitant]
     Indication: ANXIETY
     Route: 048
  22. PANTOPRAZOLE SODIUM [Concomitant]
     Indication: EROSIVE OESOPHAGITIS
     Route: 042
  23. ENOXAPARIN SODIUM [Concomitant]
     Indication: THROMBOSIS
     Route: 058
  24. SILDENAFIL CITRATE [Concomitant]
     Route: 048
  25. CEFUROXIME [Concomitant]
     Route: 048
  26. SALMETEROL [Concomitant]
     Indication: ASTHMA
     Route: 045
  27. FLUTICASONE PROPIONATE [Concomitant]
     Indication: ASTHMA
     Route: 045
  28. TIOTROPIUM BROMIDE [Concomitant]
     Indication: ASTHMA
     Route: 045
  29. LACTATED RINGER'S [Concomitant]
     Route: 042
  30. FENOTEROL [Concomitant]
     Route: 045
  31. PARACETAMOL [Concomitant]
     Route: 048
  32. CODEINE SUL TAB [Concomitant]
     Route: 048
  33. LOSARTAN POTASSIUM [Concomitant]
     Route: 048

REACTIONS (1)
  - LIPODYSTROPHY ACQUIRED [None]
